FAERS Safety Report 7301620-7 (Version None)
Quarter: 2011Q1

REPORT INFORMATION
  Report Type: 
  Country: None (occurrence: None)
  Receive Date: 20110218
  Receipt Date: 20110209
  Transmission Date: 20110831
  Serious: Yes (Hospitalization)
  Sender: FDA-Public Use
  Company Number: US-ACTELION-A-US2011-43492

PATIENT

DRUGS (1)
  1. TRACLEER [Suspect]
     Indication: PULMONARY ARTERIAL HYPERTENSION
     Dosage: UNK
     Route: 048
     Dates: start: 20101029, end: 20101101

REACTIONS (4)
  - CONSTIPATION [None]
  - HEADACHE [None]
  - FATIGUE [None]
  - INTESTINAL FUNCTIONAL DISORDER [None]
